FAERS Safety Report 8612960-3 (Version None)
Quarter: 2012Q3

REPORT INFORMATION
  Report Type: 
  Country: None (occurrence: None)
  Receive Date: 20120822
  Receipt Date: 20120814
  Transmission Date: 20120928
  Serious: No
  Sender: FDA-Public Use
  Company Number: US-ASTRAZENECA-2012SE57449

PATIENT
  Age: 62 Year
  Sex: Female
  Weight: 95.3 kg

DRUGS (9)
  1. NEXIUM [Suspect]
     Indication: GASTROOESOPHAGEAL REFLUX DISEASE
     Route: 048
     Dates: start: 20110101, end: 20111101
  2. ABILIFY [Concomitant]
     Indication: BIPOLAR DISORDER
  3. NEXIUM [Suspect]
     Route: 048
     Dates: start: 20120701, end: 20120701
  4. PRILOSEC OTC [Suspect]
     Indication: GASTROOESOPHAGEAL REFLUX DISEASE
     Dosage: FREQUENCY: DAILY
     Route: 048
     Dates: start: 20120101, end: 20120101
  5. PAXIL [Concomitant]
     Indication: BIPOLAR DISORDER
  6. LIPITOR [Concomitant]
     Indication: BLOOD CHOLESTEROL INCREASED
  7. DIAZEPAM [Concomitant]
     Indication: MOOD SWINGS
  8. ASPIRIN [Concomitant]
     Indication: CARDIAC DISORDER
  9. TRILEPTAL [Concomitant]
     Indication: BIPOLAR DISORDER

REACTIONS (6)
  - INTENTIONAL DRUG MISUSE [None]
  - GASTROOESOPHAGEAL REFLUX DISEASE [None]
  - PAIN [None]
  - ABDOMINAL PAIN UPPER [None]
  - GASTROINTESTINAL SOUNDS ABNORMAL [None]
  - DRUG INEFFECTIVE [None]
